FAERS Safety Report 23033187 (Version 1)
Quarter: 2023Q4

REPORT INFORMATION
  Report Type: Spontaneous
  Country: US (occurrence: US)
  Receive Date: 20231005
  Receipt Date: 20231005
  Transmission Date: 20240110
  Serious: Yes (Hospitalization)
  Sender: FDA-Public Use
  Company Number: US-ELI_LILLY_AND_COMPANY-US202309017416

PATIENT
  Sex: Female

DRUGS (2)
  1. HUMALOG [Suspect]
     Active Substance: INSULIN LISPRO
     Indication: Product used for unknown indication
     Dosage: 15 U, UNKNOWN
     Route: 058
  2. LEVEMIR [Concomitant]
     Active Substance: INSULIN DETEMIR
     Indication: Product used for unknown indication

REACTIONS (5)
  - Pancreatic failure [Recovered/Resolved]
  - Hepatic fibrosis [Recovered/Resolved]
  - CSF test abnormal [Recovered/Resolved]
  - Autoimmune disorder [Recovering/Resolving]
  - Thyroid disorder [Recovered/Resolved]
